FAERS Safety Report 6210717-4 (Version None)
Quarter: 2009Q2

REPORT INFORMATION
  Report Type: 
  Country: None (occurrence: None)
  Receive Date: 20090528
  Receipt Date: 20090528
  Transmission Date: 20091009
  Serious: Yes (Hospitalization)
  Sender: FDA-Public Use
  Company Number: None

PATIENT
  Sex: Female
  Weight: 85.3 kg

DRUGS (1)
  1. WARFARIN SODIUM [Suspect]
     Dosage: 3MG DAILY PO PRIOR TO ADMISSION
     Route: 048

REACTIONS (2)
  - CALCIPHYLAXIS [None]
  - SKIN LESION [None]
